FAERS Safety Report 17899027 (Version 1)
Quarter: 2020Q2

REPORT INFORMATION
  Report Type: Spontaneous
  Country: US (occurrence: US)
  Receive Date: 20200615
  Receipt Date: 20200615
  Transmission Date: 20200714
  Serious: No
  Sender: FDA-Public Use
  Company Number: US-ALEMBIC PHARMACUETICALS LIMITED-2020SCAL000246

PATIENT
  Sex: Female
  Weight: 68.95 kg

DRUGS (2)
  1. AUBAGIO [Concomitant]
     Active Substance: TERIFLUNOMIDE
     Indication: MULTIPLE SCLEROSIS
     Dosage: 13 MILLIGRAM, OD
     Route: 048
  2. DESVENLAFAXINE SUCCINATE. [Suspect]
     Active Substance: DESVENLAFAXINE SUCCINATE
     Indication: PRODUCT USED FOR UNKNOWN INDICATION
     Dosage: 50 MILLIGRAM, OD (30-COUNT)
     Route: 048
     Dates: start: 202001

REACTIONS (3)
  - Irritability [Unknown]
  - Product substitution issue [Unknown]
  - Drug ineffective [Unknown]
